FAERS Safety Report 7601754-3 (Version None)
Quarter: 2011Q3

REPORT INFORMATION
  Report Type: 
  Country: None (occurrence: None)
  Receive Date: 20110711
  Receipt Date: 20110705
  Transmission Date: 20111222
  Serious: Yes (Other)
  Sender: FDA-Public Use
  Company Number: US-PFIZER INC-2011145355

PATIENT
  Sex: Female
  Weight: 92.971 kg

DRUGS (6)
  1. DEPO-PROVERA [Suspect]
     Indication: MENORRHAGIA
  2. DEPO-PROVERA [Suspect]
     Indication: UTERINE LEIOMYOMA
  3. KLONOPIN [Concomitant]
     Dosage: UNK, AS NEEDED
  4. ALDACTONE [Concomitant]
     Indication: HYPERTENSION
     Dosage: UNK, 3X/DAY
  5. DEPO-PROVERA [Suspect]
     Indication: OFF LABEL USE
     Dosage: UNK
     Dates: start: 20110501
  6. ZOLOFT [Concomitant]
     Indication: ANXIETY
     Dosage: UNK, DAILY
     Route: 048

REACTIONS (14)
  - MOOD ALTERED [None]
  - DRUG INEFFECTIVE FOR UNAPPROVED INDICATION [None]
  - CONDITION AGGRAVATED [None]
  - HORMONE LEVEL ABNORMAL [None]
  - PREMENSTRUAL SYNDROME [None]
  - MENSTRUAL DISORDER [None]
  - BLOOD PRESSURE INADEQUATELY CONTROLLED [None]
  - IRRITABILITY [None]
  - CRYING [None]
  - WEIGHT INCREASED [None]
  - MOOD SWINGS [None]
  - EMOTIONAL DISORDER [None]
  - AGGRESSION [None]
  - HYPERHIDROSIS [None]
